FAERS Safety Report 5611112-9 (Version None)
Quarter: 2008Q1

REPORT INFORMATION
  Report Type: 
  Country: None (occurrence: None)
  Receive Date: 20080201
  Receipt Date: 20080129
  Transmission Date: 20080703
  Serious: Yes (Other)
  Sender: FDA-Public Use
  Company Number: US-MERCK-0801USA04431

PATIENT
  Age: 62 Year
  Sex: Female

DRUGS (4)
  1. JANUVIA [Suspect]
     Indication: DIABETES MELLITUS
     Route: 048
     Dates: start: 20071001
  2. HYZAAR [Concomitant]
     Route: 065
  3. ZOCOR [Concomitant]
     Route: 065
  4. METFORMIN [Concomitant]
     Route: 065

REACTIONS (1)
  - LYMPHOMA [None]
